FAERS Safety Report 22206513 (Version 1)
Quarter: 2023Q2

REPORT INFORMATION
  Report Type: Spontaneous
  Country: US (occurrence: US)
  Receive Date: 20230413
  Receipt Date: 20230413
  Transmission Date: 20230721
  Serious: No
  Sender: FDA-Public Use
  Company Number: US-TAKEDA-2023TUS037291

PATIENT
  Age: 3 Decade
  Sex: Male

DRUGS (1)
  1. TRINTELLIX [Suspect]
     Active Substance: VORTIOXETINE HYDROBROMIDE
     Indication: Attention deficit hyperactivity disorder
     Dosage: 10 MILLIGRAM, QD
     Route: 065

REACTIONS (3)
  - Product use issue [Unknown]
  - Product use in unapproved indication [Unknown]
  - No adverse event [Unknown]
